FAERS Safety Report 10520235 (Version 1)
Quarter: 2014Q4

REPORT INFORMATION
  Report Type: Spontaneous
  Country: US (occurrence: US)
  Receive Date: 20141015
  Receipt Date: 20141015
  Transmission Date: 20150528
  Serious: No
  Sender: FDA-Public Use
  Company Number: US-BAYER-2014-151592

PATIENT
  Age: 71 Year
  Sex: Male

DRUGS (3)
  1. BAYER GENUINE ASPIRIN [Suspect]
     Active Substance: ASPIRIN
  2. MOBIC [Concomitant]
     Active Substance: MELOXICAM
     Dosage: 15 MG, UNK
  3. ALEVE [Suspect]
     Active Substance: NAPROXEN SODIUM

REACTIONS (1)
  - Drug ineffective [Unknown]
